FAERS Safety Report 19387495 (Version 1)
Quarter: 2021Q2

REPORT INFORMATION
  Report Type: Spontaneous
  Country: US (occurrence: US)
  Receive Date: 20210607
  Receipt Date: 20210607
  Transmission Date: 20210717
  Serious: Yes (Hospitalization, Other)
  Sender: FDA-Public Use
  Company Number: None

PATIENT
  Age: 68 Year
  Sex: Male
  Weight: 83.9 kg

DRUGS (5)
  1. LEVOTHYROXINE (SYNTHROID, LEVOTHROID) [Concomitant]
  2. ATOVAQUONE (MEPON) [Concomitant]
  3. METHYLPHENIDATE HCI [Concomitant]
     Active Substance: METHYLPHENIDATE HYDROCHLORIDE
  4. CALCIUM CARBONATE/VITAMIN D3 (CALCIUM 500 WITH D  ORAL) [Concomitant]
  5. NIVOLUMAB 48MG IV [Suspect]
     Active Substance: NIVOLUMAB
     Indication: LEUKOPLAKIA ORAL
     Dosage: ?          OTHER FREQUENCY:Q28DAYS, 4X;OTHER ROUTE:+PIV W/BR OVER 60MIN?
     Dates: start: 20210324, end: 20210324

REACTIONS (5)
  - Insomnia [None]
  - Fatigue [None]
  - Hepatitis acute [None]
  - Palpitations [None]
  - Immune-mediated hepatitis [None]

NARRATIVE: CASE EVENT DATE: 20210606
